FAERS Safety Report 6903563-7 (Version None)
Quarter: 2010Q3

REPORT INFORMATION
  Report Type: 
  Country: None (occurrence: None)
  Receive Date: 20100708
  Receipt Date: 20090922
  Transmission Date: 20110219
  Serious: Yes (Other)
  Sender: FDA-Public Use
  Company Number: 2009188047

PATIENT
  Age: 51 Year
  Sex: Female
  Weight: 54.9 kg

DRUGS (3)
  1. CHANTIX [Suspect]
     Indication: SMOKING CESSATION THERAPY
     Dosage: ORAL
     Route: 048
     Dates: start: 20090401, end: 20090801
  2. XANAX [Concomitant]
  3. TRAMADOL HCL [Concomitant]

REACTIONS (8)
  - DECREASED APPETITE [None]
  - FEELING ABNORMAL [None]
  - MEMORY IMPAIRMENT [None]
  - MIGRAINE [None]
  - MOBILITY DECREASED [None]
  - SUICIDAL IDEATION [None]
  - TERMINAL INSOMNIA [None]
  - WEIGHT DECREASED [None]
